FAERS Safety Report 21285015 (Version 6)
Quarter: 2023Q1

REPORT INFORMATION
  Report Type: Spontaneous
  Country: US (occurrence: US)
  Receive Date: 20220902
  Receipt Date: 20230228
  Transmission Date: 20230418
  Serious: Yes (Hospitalization)
  Sender: FDA-Public Use
  Company Number: US-UCBSA-2022051861

PATIENT
  Age: 3 Year
  Sex: Female

DRUGS (1)
  1. FINTEPLA [Suspect]
     Active Substance: FENFLURAMINE
     Indication: Product used for unknown indication
     Dosage: 3.5 MILLILITER, 2X/DAY (BID)
     Route: 048

REACTIONS (9)
  - Seizure [Unknown]
  - COVID-19 [Unknown]
  - Nasopharyngitis [Not Recovered/Not Resolved]
  - Food refusal [Not Recovered/Not Resolved]
  - Pyrexia [Not Recovered/Not Resolved]
  - Respiratory tract congestion [Not Recovered/Not Resolved]
  - Cough [Not Recovered/Not Resolved]
  - Viral infection [Not Recovered/Not Resolved]
  - Weight decreased [Not Recovered/Not Resolved]

NARRATIVE: CASE EVENT DATE: 20220731
